FAERS Safety Report 8345357-4 (Version None)
Quarter: 2012Q2

REPORT INFORMATION
  Report Type: 
  Country: None (occurrence: None)
  Receive Date: 20120508
  Receipt Date: 20120119
  Transmission Date: 20120825
  Serious: Yes (Other)
  Sender: FDA-Public Use
  Company Number: US-PFIZER INC-2012111170

PATIENT

DRUGS (1)
  1. LIPITOR [Suspect]
     Dosage: 80 MG, UNK

REACTIONS (3)
  - BLOOD CHOLESTEROL INCREASED [None]
  - MUSCLE DISORDER [None]
  - PAIN IN EXTREMITY [None]
